FAERS Safety Report 8785842 (Version 2)
Quarter: 2012Q4

REPORT INFORMATION
  Report Type: 
  Country: US (occurrence: US)
  Receive Date: 20120914
  Receipt Date: 20121017
  Transmission Date: 20130627
  Serious: Yes (Hospitalization)
  Sender: FDA-Public Use
  Company Number: US-B.I. PHARMACEUTICALS,INC./RIDGEFIELD-2012-BP-22159BP

PATIENT
  Age: 70 None
  Sex: Female
  Weight: 81.65 kg

DRUGS (9)
  1. PRADAXA [Suspect]
     Indication: ATRIAL FIBRILLATION
     Dosage: 300 mg
     Route: 048
     Dates: start: 20120804, end: 20120810
  2. ZOCOR [Concomitant]
     Indication: BLOOD CHOLESTEROL INCREASED
     Dosage: 40 mg
     Route: 048
     Dates: start: 20100715
  3. ZOCOR [Concomitant]
     Indication: HYPERLIPIDAEMIA
  4. AMBIEN [Concomitant]
     Indication: INSOMNIA
     Route: 048
  5. NORVASC [Concomitant]
     Indication: HYPERTENSION
     Dosage: 10 mg
     Route: 048
     Dates: start: 20100301
  6. COZAAR [Concomitant]
     Indication: HYPERTENSION
     Route: 048
     Dates: start: 2007, end: 201208
  7. ALDACTONE [Concomitant]
     Indication: HYPERTENSION
     Dosage: 50 mg
  8. FERROUS SULFATE [Concomitant]
     Indication: HYPERTENSION
     Dates: start: 20120807
  9. LASIX [Concomitant]
     Indication: FLUID RETENTION
     Dosage: 40 mg
     Dates: start: 20100810

REACTIONS (3)
  - Haematochezia [Recovered/Resolved]
  - Haemorrhage [Recovered/Resolved]
  - Anaemia [Recovered/Resolved]
